FAERS Safety Report 7334365-8 (Version None)
Quarter: 2011Q1

REPORT INFORMATION
  Report Type: 
  Country: None (occurrence: None)
  Receive Date: 20110307
  Receipt Date: 20101203
  Transmission Date: 20110831
  Serious: No
  Sender: FDA-Public Use
  Company Number: US-KINGPHARMUSA00001-K201001469

PATIENT
  Age: 50 Year
  Sex: Male

DRUGS (1)
  1. EMBEDA [Suspect]
     Indication: PAIN
     Dosage: 60 MG, BID
     Route: 048
     Dates: start: 20100901, end: 20101101

REACTIONS (2)
  - ERUCTATION [None]
  - DYSGEUSIA [None]
